FAERS Safety Report 7395380 (Version 8)
Quarter: 2022Q1

REPORT INFORMATION
  Report Type: Spontaneous
  Country: GB (occurrence: IN)
  Receive Date: 20100521
  Receipt Date: 20220331
  Transmission Date: 20220423
  Serious: Yes (Hospitalization, Disabling, Other)
  Sender: FDA-Public Use
  Company Number: GB-BETA-22668/10L

PATIENT
  Age: 70 Year
  Sex: Male

DRUGS (24)
  1. CLOPIDOGREL [Interacting]
     Active Substance: CLOPIDOGREL BISULFATE
     Indication: Chest pain
     Dosage: UNK
  2. CLOPIDOGREL [Interacting]
     Active Substance: CLOPIDOGREL BISULFATE
     Indication: Antiplatelet therapy
     Dosage: 75 MILLIGRAM, QD
     Route: 048
  3. CLOPIDOGREL [Interacting]
     Active Substance: CLOPIDOGREL BISULFATE
     Dosage: 300 MILLIGRAM, QD 300 MG, DAILY
     Route: 048
  4. TEICOPLANIN [Interacting]
     Active Substance: TEICOPLANIN
     Indication: Cellulitis
     Dosage: 400 MILLIGRAM, QD
     Route: 030
  5. TEICOPLANIN [Interacting]
     Active Substance: TEICOPLANIN
     Indication: Antibiotic therapy
     Dosage: UNK
  6. MEROPENEM [Interacting]
     Active Substance: MEROPENEM
     Indication: Antibiotic therapy
     Dosage: 2 GRAM, BID (2 G,BID)
     Route: 051
  7. MEROPENEM [Interacting]
     Active Substance: MEROPENEM
     Dosage: 2 GRAM, BID (2 G,BID)
     Route: 042
  8. MEROPENEM [Interacting]
     Active Substance: MEROPENEM
     Dosage: 2 GRAM, BID (2 G,BID)
     Route: 030
  9. WARFARIN [Interacting]
     Active Substance: WARFARIN
     Indication: Factor V deficiency
     Dosage: WARFARIN THERAPY END FLAG: DRUG NO LONGER ADMINISTERED)
  10. WARFARIN [Interacting]
     Active Substance: WARFARIN
     Indication: Pulmonary embolism
     Dosage: PREFERRED PRODUCT DESCRIPTION:WARFARIN THERAPY:NO LONGER ADMINISTERED
  11. WARFARIN [Interacting]
     Active Substance: WARFARIN
     Dosage: UNK (NI)
  12. CIPROFLOXACIN [Interacting]
     Active Substance: CIPROFLOXACIN
     Indication: Chalazion
     Dosage: 750 MILLIGRAM, BID (750 MG,BID)
  13. CIPROFLOXACIN [Interacting]
     Active Substance: CIPROFLOXACIN
     Indication: Antibiotic therapy
     Dosage: 750 MILLIGRAM, BID (750 MG, 2X PER DAY)
     Route: 048
  14. CIPROFLOXACIN [Interacting]
     Active Substance: CIPROFLOXACIN
     Dosage: UNK
  15. ERYTHROMYCIN [Interacting]
     Active Substance: ERYTHROMYCIN
     Indication: Cellulitis
     Dosage: 250 MILLIGRAM, QID (250 MG,QID)
     Route: 048
  16. ERYTHROMYCIN [Interacting]
     Active Substance: ERYTHROMYCIN
     Indication: Antibiotic therapy
     Dosage: 250 MILLIGRAM, QID (250 MG,QID)
     Route: 048
  17. METRONIDAZOLE [Interacting]
     Active Substance: METRONIDAZOLE
     Indication: Chalazion
     Dosage: 400 MILLIGRAM, TID (400 MG,TID)
     Route: 048
  18. METRONIDAZOLE [Interacting]
     Active Substance: METRONIDAZOLE
     Indication: Antibiotic therapy
     Dosage: 400 MILLIGRAM, TID (400 MG,TID)
     Route: 048
  19. METRONIDAZOLE [Interacting]
     Active Substance: METRONIDAZOLE
     Dosage: 250 MILLIGRAM, QID
     Route: 048
  20. ASPIRIN [Interacting]
     Active Substance: ASPIRIN
     Indication: Antiplatelet therapy
     Dosage: UNK
  21. ASPIRIN [Interacting]
     Active Substance: ASPIRIN
     Dosage: RECEIVED 300MG ON ADMITTANCE AND STARTED ON A 75MG/DAY REGIME)
  22. ASPIRIN [Interacting]
     Active Substance: ASPIRIN
     Dosage: 75 MILLIGRAM, QD
     Route: 065
  23. ASPIRIN [Interacting]
     Active Substance: ASPIRIN
     Dosage: 300 MILLIGRAM, QD
  24. VITAMIN K [Concomitant]
     Active Substance: PHYTONADIONE
     Dosage: UNK

REACTIONS (14)
  - Hyphaema [Not Recovered/Not Resolved]
  - International normalised ratio increased [Recovered/Resolved]
  - Intraocular pressure increased [Unknown]
  - Coagulation time prolonged [Recovered/Resolved]
  - Eye pain [Recovered/Resolved with Sequelae]
  - Headache [Unknown]
  - Decreased appetite [Unknown]
  - Pyrexia [Unknown]
  - Nausea [Unknown]
  - Visual impairment [Unknown]
  - Drug interaction [Unknown]
  - Visual acuity reduced [Unknown]
  - Potentiating drug interaction [Unknown]
  - Off label use [Unknown]
